FAERS Safety Report 16603154 (Version 2)
Quarter: 2019Q3

REPORT INFORMATION
  Report Type: Spontaneous
  Country: US (occurrence: US)
  Receive Date: 20190721
  Receipt Date: 20190825
  Transmission Date: 20191004
  Serious: No
  Sender: FDA-Public Use
  Company Number: US-JNJFOC-20190726318

PATIENT
  Sex: Male
  Weight: 65.83 kg

DRUGS (2)
  1. INSULIN [Concomitant]
     Active Substance: INSULIN NOS
     Indication: DIABETES MELLITUS
     Dosage: 15 AND 10 AT NIGHT
     Route: 065
  2. MENS ROGAINE EXTRA STRENGTH [Suspect]
     Active Substance: MINOXIDIL
     Indication: ALOPECIA
     Dosage: ABOUT A DIME SIZE TWICE DAILY FOR ABOUT A WEEK AND A HALF
     Route: 061

REACTIONS (2)
  - Drug hypersensitivity [Recovered/Resolved]
  - Incorrect dose administered [Recovered/Resolved]
